FAERS Safety Report 7571757-6 (Version None)
Quarter: 2011Q2

REPORT INFORMATION
  Report Type: 
  Country: None (occurrence: None)
  Receive Date: 20110624
  Receipt Date: 20110614
  Transmission Date: 20111010
  Serious: Yes (Other)
  Sender: FDA-Public Use
  Company Number: JP-ASTRAZENECA-2011SE31947

PATIENT
  Sex: Female
  Weight: 76.6 kg

DRUGS (16)
  1. CHLORPROMAZINE HCL [Suspect]
     Indication: DEPRESSION
     Route: 048
  2. ROHYPNOL [Suspect]
     Indication: DISSOCIATIVE DISORDER
     Route: 048
  3. NITRAZEPAM [Suspect]
     Indication: DISSOCIATIVE DISORDER
     Route: 048
  4. HIRNAMIN [Concomitant]
  5. RETICOLAN [Suspect]
     Indication: DISSOCIATIVE DISORDER
     Route: 065
  6. RETICOLAN [Suspect]
     Indication: DEPRESSION
     Route: 065
  7. ANAFRANIL [Suspect]
     Indication: DISSOCIATIVE DISORDER
     Route: 048
  8. NITRAZEPAM [Suspect]
     Indication: DEPRESSION
     Route: 048
  9. SEROQUEL [Suspect]
     Indication: DEPRESSION
     Route: 048
  10. DOGMATYL [Suspect]
     Indication: DEPRESSION
     Route: 048
  11. ANAFRANIL [Suspect]
     Indication: DEPRESSION
     Route: 048
  12. ROHYPNOL [Suspect]
     Indication: DEPRESSION
     Route: 048
  13. DOGMATYL [Suspect]
     Indication: DISSOCIATIVE DISORDER
     Route: 048
  14. DEPAKENE [Concomitant]
  15. SEROQUEL [Suspect]
     Indication: DISSOCIATIVE DISORDER
     Route: 048
  16. CHLORPROMAZINE HCL [Suspect]
     Indication: DISSOCIATIVE DISORDER
     Route: 048

REACTIONS (5)
  - PLACENTAL INFARCTION [None]
  - PLACENTAL DISORDER [None]
  - PREGNANCY [None]
  - OEDEMA PERIPHERAL [None]
  - DRUG EXPOSURE DURING PREGNANCY [None]
